FAERS Safety Report 10405321 (Version 1)
Quarter: 2014Q3

REPORT INFORMATION
  Report Type: Spontaneous
  Country: US (occurrence: None)
  Receive Date: 20140820
  Receipt Date: 20140820
  Transmission Date: 20150326
  Serious: Yes (Other)
  Sender: FDA-Public Use
  Company Number: IMP_07833_2014

PATIENT
  Age: 28 Year
  Sex: Male

DRUGS (1)
  1. ALPRAZOLAM. [Suspect]
     Active Substance: ALPRAZOLAM
     Indication: PRODUCT USED FOR UNKNOWN INDICATION
     Route: 048

REACTIONS (8)
  - Drug ineffective [None]
  - Road traffic accident [None]
  - Splenic rupture [None]
  - Subarachnoid haemorrhage [None]
  - Alcohol withdrawal syndrome [None]
  - Craniocerebral injury [None]
  - Haematocrit decreased [None]
  - Blood alcohol increased [None]
